FAERS Safety Report 8936405 (Version 2)
Quarter: 2013Q4

REPORT INFORMATION
  Report Type: Spontaneous
  Country: CH (occurrence: CH)
  Receive Date: 20121130
  Receipt Date: 20131224
  Transmission Date: 20140711
  Serious: Yes (Other)
  Sender: FDA-Public Use
  Company Number: CH-ELI_LILLY_AND_COMPANY-CH201211005688

PATIENT
  Age: 36 Year
  Sex: Female

DRUGS (3)
  1. DALMADORM [Suspect]
     Indication: DEPRESSION
     Dosage: 15 MG, QD
     Route: 064
     Dates: start: 20120728
  2. LORAZEPAM [Suspect]
     Indication: DEPRESSION
     Dosage: 2 MG, UNKNOWN
     Route: 064
     Dates: start: 20120728
  3. CYMBALTA [Suspect]
     Indication: DEPRESSION
     Dosage: 60 MG, QD
     Route: 064
     Dates: start: 20120414

REACTIONS (1)
  - Exposure during pregnancy [Not Recovered/Not Resolved]
